FAERS Safety Report 20526818 (Version 1)
Quarter: 2022Q1

REPORT INFORMATION
  Report Type: Spontaneous
  Country: US (occurrence: None)
  Receive Date: 20220227
  Receipt Date: 20220227
  Transmission Date: 20220423
  Serious: Yes (Hospitalization, Disabling)
  Sender: FDA-Public Use
  Company Number: None

PATIENT
  Age: 29 Year
  Sex: Female

DRUGS (4)
  1. MIRENA [Suspect]
     Active Substance: LEVONORGESTREL
  2. VITAMIN B12 [Concomitant]
     Active Substance: CYANOCOBALAMIN
  3. VITAMIN D [Concomitant]
     Active Substance: VITAMIN D NOS
  4. IMMUNE SUPPORT [Concomitant]

REACTIONS (5)
  - Idiopathic intracranial hypertension [None]
  - Chest pain [None]
  - Hypoaesthesia [None]
  - Neuropathy peripheral [None]
  - Tinnitus [None]

NARRATIVE: CASE EVENT DATE: 20200101
